FAERS Safety Report 12519346 (Version 1)
Quarter: 2016Q2

REPORT INFORMATION
  Report Type: Report from Study
  Country: US (occurrence: US)
  Receive Date: 20160630
  Receipt Date: 20160630
  Transmission Date: 20160815
  Serious: Yes (Hospitalization)
  Sender: FDA-Public Use
  Company Number: US-GILEAD-2016-0208113

PATIENT
  Age: 58 Year
  Sex: Female

DRUGS (3)
  1. RIBAVIRIN. [Suspect]
     Active Substance: RIBAVIRIN
     Dosage: 600 MG, QD
     Route: 048
     Dates: start: 20160323
  2. RIBAVIRIN. [Suspect]
     Active Substance: RIBAVIRIN
     Indication: HEPATITIS C
     Dosage: 200 MG, QD
     Route: 048
     Dates: end: 20160615
  3. SOFOSBUVIR [Suspect]
     Active Substance: SOFOSBUVIR
     Indication: HEPATITIS C
     Dosage: 400 MG, QD
     Route: 048
     Dates: start: 20160323, end: 20160615

REACTIONS (8)
  - Panic attack [Not Recovered/Not Resolved]
  - Anger [Unknown]
  - Ear pain [Recovered/Resolved]
  - Headache [Recovering/Resolving]
  - Tension [Unknown]
  - Anxiety [Not Recovered/Not Resolved]
  - Vitreous floaters [Recovered/Resolved]
  - Thinking abnormal [Recovered/Resolved]

NARRATIVE: CASE EVENT DATE: 20160325
